FAERS Safety Report 15059038 (Version 1)
Quarter: 2018Q2

REPORT INFORMATION
  Report Type: Spontaneous
  Country: US (occurrence: US)
  Receive Date: 20180625
  Receipt Date: 20180625
  Transmission Date: 20180711
  Serious: Yes (Life-Threatening, Hospitalization)
  Sender: FDA-Public Use
  Company Number: US-BAYER-2018-118182

PATIENT
  Sex: Male

DRUGS (1)
  1. GADAVIST [Suspect]
     Active Substance: GADOBUTROL
     Indication: NUCLEAR MAGNETIC RESONANCE IMAGING BRAIN
     Dosage: 9.5 ML, UNK
     Route: 042
     Dates: start: 20180620

REACTIONS (1)
  - Contrast media reaction [None]
